FAERS Safety Report 5639923-4 (Version None)
Quarter: 2008Q1

REPORT INFORMATION
  Report Type: 
  Country: None (occurrence: None)
  Receive Date: 20080227
  Receipt Date: 20080220
  Transmission Date: 20080703
  Serious: Yes (Hospitalization)
  Sender: FDA-Public Use
  Company Number: CA-ELI_LILLY_AND_COMPANY-CA200802005290

PATIENT
  Sex: Female

DRUGS (3)
  1. ZYPREXA [Suspect]
  2. CELEXA [Concomitant]
  3. SEROQUEL [Concomitant]

REACTIONS (2)
  - GENERAL PHYSICAL HEALTH DETERIORATION [None]
  - WEIGHT INCREASED [None]
